FAERS Safety Report 8778628 (Version 6)
Quarter: 2015Q1

REPORT INFORMATION
  Report Type: Spontaneous
  Country: US (occurrence: US)
  Receive Date: 20120912
  Receipt Date: 20150306
  Transmission Date: 20150721
  Serious: Yes (Other)
  Sender: FDA-Public Use
  Company Number: US-ASTRAZENECA-2012SE60653

PATIENT
  Age: 81 Year
  Sex: Female

DRUGS (25)
  1. METOPROLOL TARTRATE. [Concomitant]
     Active Substance: METOPROLOL TARTRATE
     Route: 048
     Dates: start: 20091002
  2. FLAGYL [Concomitant]
     Active Substance: METRONIDAZOLE\METRONIDAZOLE HYDROCHLORIDE
  3. CRESTOR [Suspect]
     Active Substance: ROSUVASTATIN CALCIUM
     Indication: BLOOD CHOLESTEROL ABNORMAL
     Route: 048
  4. MORPHINE DERIVATIVES [Suspect]
     Active Substance: MORPHINE
     Route: 065
  5. FISH OIL [Concomitant]
     Active Substance: FISH OIL
     Route: 048
  6. QUINAPRIL [Concomitant]
     Active Substance: QUINAPRIL\QUINAPRIL HYDROCHLORIDE
     Route: 048
     Dates: start: 20100331
  7. RECLAST [Concomitant]
     Active Substance: ZOLEDRONIC ACID
  8. SENOKOT [Concomitant]
     Active Substance: SENNOSIDES
     Dosage: PRN
  9. COMBIVENT [Concomitant]
     Active Substance: ALBUTEROL SULFATE\IPRATROPIUM BROMIDE
     Indication: EMPHYSEMA
     Dosage: 18-103 MCG/ACT, INHALE 2 PUFFS 4 TIMES DAILY AND AS NEEDED. DO NOT EXCEED 12 PUFFS IN 24 HOURS
     Route: 055
     Dates: start: 20111114
  10. OXAZEPAM. [Concomitant]
     Active Substance: OXAZEPAM
     Route: 048
     Dates: start: 20091022
  11. NORVASC [Concomitant]
     Active Substance: AMLODIPINE BESYLATE
  12. NAPROSYN [Concomitant]
     Active Substance: NAPROXEN
  13. CRESTOR [Suspect]
     Active Substance: ROSUVASTATIN CALCIUM
     Indication: BLOOD CHOLESTEROL ABNORMAL
     Dosage: HALF TABLET BID
     Route: 048
     Dates: start: 20100331
  14. ASPIRIN. [Concomitant]
     Active Substance: ASPIRIN
     Route: 048
     Dates: start: 20090828
  15. TRIMO SAN [Concomitant]
     Active Substance: OXYQUINOLINE SULFATE\SODIUM LAURYL SULFATE
     Dosage: INSERT APPLICATOR TWICE WEEKLY
     Route: 067
  16. OMEPRAZOLE. [Suspect]
     Active Substance: OMEPRAZOLE
     Route: 048
  17. HYDROCODONE BITARTRATE AND ACETAMINOPHEN [Concomitant]
     Active Substance: ACETAMINOPHEN\HYDROCODONE BITARTRATE
     Dosage: 7.5 - 750 MG, 1 DF, EVERY SIX HOURS, AS NEEDED
     Route: 048
     Dates: start: 20100129
  18. MULTIVITAMINS [Concomitant]
     Active Substance: VITAMINS
     Route: 048
  19. ZETIA [Concomitant]
     Active Substance: EZETIMIBE
     Route: 048
     Dates: start: 20090828
  20. DIAZEPAM. [Concomitant]
     Active Substance: DIAZEPAM
     Indication: ANXIETY DISORDER
     Route: 048
     Dates: start: 20120727
  21. LOVENOX [Concomitant]
     Active Substance: ENOXAPARIN SODIUM
  22. CHONDROITIN SULFATE (BOVINE)\GLUCOSAMINE SULFATE [Concomitant]
     Active Substance: CHONDROITIN SULFATE (BOVINE)\GLUCOSAMINE SULFATE
     Route: 048
     Dates: start: 20111003
  23. LEVOTHYROXINE SODIUM. [Concomitant]
     Active Substance: LEVOTHYROXINE SODIUM
     Dosage: ONE DF EVERY DAY (MONDAY-SATURDAY) ON SUNDAY 2 DF
     Route: 048
     Dates: start: 20090922
  24. HYDROCHLOROTHIAZIDE. [Concomitant]
     Active Substance: HYDROCHLOROTHIAZIDE
     Route: 048
     Dates: start: 20090828
  25. VITAMIN D [Concomitant]
     Active Substance: CHOLECALCIFEROL
     Route: 048
     Dates: start: 20100226

REACTIONS (9)
  - Rotator cuff syndrome [Unknown]
  - Dyspnoea [Unknown]
  - Neoplasm malignant [Unknown]
  - Pulmonary embolism [Unknown]
  - Myocardial infarction [Unknown]
  - Intentional product misuse [Unknown]
  - Vocal cord disorder [Unknown]
  - Off label use [Unknown]
  - Dysphonia [Unknown]

NARRATIVE: CASE EVENT DATE: 2013
